FAERS Safety Report 20104862 (Version 1)
Quarter: 2021Q4

REPORT INFORMATION
  Report Type: Spontaneous
  Country: NL (occurrence: NL)
  Receive Date: 20211124
  Receipt Date: 20211124
  Transmission Date: 20220304
  Serious: Yes (Life-Threatening, Hospitalization, Other)
  Sender: FDA-Public Use
  Company Number: NL-LRB-00710555

PATIENT
  Age: 81 Year
  Sex: Female
  Weight: 55 kg

DRUGS (12)
  1. NAPROXEN [Interacting]
     Active Substance: NAPROXEN
     Indication: Pain
     Dosage: 500 MILLIGRAM, TWO TIMES A DAY (2 X A DAY 1 PIECE)
     Route: 065
     Dates: start: 20211018, end: 20211023
  2. PHENPROCOUMON [Interacting]
     Active Substance: PHENPROCOUMON
     Indication: Peripheral arterial occlusive disease
     Dosage: 3 MILLIGRAM, ONCE A DAY (1 X DAY 1 PIECE)
     Route: 065
     Dates: start: 20171212, end: 20211023
  3. DENOSUMAB [Concomitant]
     Active Substance: DENOSUMAB
     Indication: Product used for unknown indication
     Dosage: UNK (INJECTION FLUID, 60 MG/ML (MILLIGRAMS PER MILLILITER)
     Route: 065
  4. METHOTREXATE [Concomitant]
     Active Substance: METHOTREXATE
     Indication: Product used for unknown indication
     Dosage: UNK (TABLET, 2.5 MG (MILLIGRAM))
     Route: 065
  5. FUROSEMIDE [Concomitant]
     Active Substance: FUROSEMIDE
     Indication: Product used for unknown indication
     Dosage: UNK (TABLET, 20 MG (MILLIGRAM))
     Route: 065
  6. SOTALOL [Concomitant]
     Active Substance: SOTALOL
     Indication: Product used for unknown indication
     Dosage: UNK (TABLET, 80 MG (MILLIGRAM))
     Route: 065
  7. NIFEDIPINE [Concomitant]
     Active Substance: NIFEDIPINE
     Indication: Product used for unknown indication
     Dosage: UNK (TABLET, 10 MG (MILLIGRAM))
     Route: 065
  8. FOLIC ACID [Concomitant]
     Active Substance: FOLIC ACID
     Indication: Product used for unknown indication
     Dosage: UNK (TABLET, 5 MG (MILLIGRAM))
     Route: 065
  9. METOPROLOL [Concomitant]
     Active Substance: METOPROLOL
     Indication: Product used for unknown indication
     Dosage: UNK (MODIFIED-RELEASE TABLET, 200 MG (MILLIGRAMS)
     Route: 065
  10. CLINDAMYCIN [Concomitant]
     Active Substance: CLINDAMYCIN
     Indication: Product used for unknown indication
     Dosage: UNK (CAPSULE, 300 MG (MILLIGRAM))
     Route: 065
  11. CALCIUM CARBIMIDE [Concomitant]
     Active Substance: CALCIUM CARBIMIDE
     Indication: Product used for unknown indication
     Dosage: UNK (TABLET 1,25 MG/800IE)
     Route: 065
  12. METAMIZOLE [Concomitant]
     Active Substance: METAMIZOLE
     Indication: Product used for unknown indication
     Dosage: UNK (INJECTION FLUID, 500 MG/ML (MILLIGRAMS PER MILLILITER))
     Route: 065

REACTIONS (5)
  - Hypovolaemic shock [Recovering/Resolving]
  - Gastric ulcer [Unknown]
  - Melaena [Unknown]
  - Haemoglobin decreased [Unknown]
  - Drug interaction [Unknown]

NARRATIVE: CASE EVENT DATE: 20211023
